FAERS Safety Report 12323773 (Version 1)
Quarter: 2016Q2

REPORT INFORMATION
  Report Type: Spontaneous
  Country: US (occurrence: US)
  Receive Date: 20160502
  Receipt Date: 20160502
  Transmission Date: 20160815
  Serious: No
  Sender: FDA-Public Use
  Company Number: ADR-2015-01211

PATIENT
  Age: 60 Year

DRUGS (6)
  1. AMPYRA [Suspect]
     Active Substance: DALFAMPRIDINE
     Indication: MULTIPLE SCLEROSIS
     Route: 048
     Dates: start: 201301
  2. REBIF [Suspect]
     Active Substance: INTERFERON BETA-1A
     Route: 058
  3. GERITOL COMPLETE [Concomitant]
  4. VITAMIN B [Concomitant]
     Active Substance: VITAMIN B
  5. METHIONINE [Concomitant]
     Active Substance: METHIONINE
  6. BACLOFEN. [Suspect]
     Active Substance: BACLOFEN

REACTIONS (1)
  - Rash [Unknown]
